FAERS Safety Report 13393492 (Version 2)
Quarter: 2017Q1

REPORT INFORMATION
  Report Type: Spontaneous
  Country: US (occurrence: US)
  Receive Date: 20170331
  Receipt Date: 20170331
  Transmission Date: 20170429
  Serious: Yes (Other)
  Sender: FDA-Public Use
  Company Number: US-GE HEALTHCARE LIFE SCIENCES-OSCN-PR-0807L-0470

PATIENT
  Age: 37 Year
  Sex: Female

DRUGS (2)
  1. GADOLINIUM (UNSPECIFIED) [Suspect]
     Active Substance: GADOLINIUM
     Indication: PRODUCT USED FOR UNKNOWN INDICATION
     Dosage: MULTIPLE ADMINISTRATIONS ON VARIOUS DATES
     Route: 065
  2. GADOLINIUM (UNSPECIFIED) [Suspect]
     Active Substance: GADOLINIUM
     Dosage: MULTIPLE ADMINISTRATIONS ON VARIOUS DATES

REACTIONS (1)
  - Nephrogenic systemic fibrosis [Not Recovered/Not Resolved]
